FAERS Safety Report 20624851 (Version 1)
Quarter: 2022Q1

REPORT INFORMATION
  Report Type: Spontaneous
  Country: CN (occurrence: CN)
  Receive Date: 20220323
  Receipt Date: 20220323
  Transmission Date: 20220423
  Serious: Yes (Other)
  Sender: FDA-Public Use
  Company Number: CN-JNJFOC-20220342190

PATIENT
  Age: 20 Day
  Sex: Female
  Weight: 1.04 kg

DRUGS (2)
  1. CHILDRENS MOTRIN [Suspect]
     Active Substance: IBUPROFEN
     Indication: Patent ductus arteriosus
     Dosage: MEDICATION - DOSES: 1?MEDICATION - DAYS: 1, AT A DOSE OF 0.5 ML-0.25 ML-0.25 ML, THREE DOSES IN TOTA
     Route: 048
     Dates: start: 20220308, end: 20220308
  2. CHILDRENS MOTRIN [Suspect]
     Active Substance: IBUPROFEN
     Dosage: MEDICATION - DOSES: 1?MEDICATION - DAYS: 1
     Route: 048
     Dates: start: 20220309, end: 20220310

REACTIONS (1)
  - Oliguria [Recovered/Resolved]

NARRATIVE: CASE EVENT DATE: 20220309
